FAERS Safety Report 5639988-X (Version None)
Quarter: 2008Q1

REPORT INFORMATION
  Report Type: 
  Country: None (occurrence: None)
  Receive Date: 20080227
  Receipt Date: 20070316
  Transmission Date: 20080703
  Serious: No
  Sender: FDA-Public Use
  Company Number: US-BAXTER-2007BH002663

PATIENT
  Age: 27 Year
  Sex: Female
  Weight: 90 kg

DRUGS (2)
  1. HEPARIN SODIUM [Suspect]
     Indication: COAGULATION FACTOR V LEVEL ABNORMAL
     Route: 058
     Dates: start: 20070130, end: 20070218
  2. HEPARIN SODIUM [Suspect]
     Route: 058
     Dates: start: 20070225, end: 20070227

REACTIONS (2)
  - BETA HAEMOLYTIC STREPTOCOCCAL INFECTION [None]
  - FEELING ABNORMAL [None]
